FAERS Safety Report 7287377-7 (Version None)
Quarter: 2011Q1

REPORT INFORMATION
  Report Type: 
  Country: None (occurrence: None)
  Receive Date: 20110211
  Receipt Date: 20110204
  Transmission Date: 20110831
  Serious: No
  Sender: FDA-Public Use
  Company Number: US-JNJFOC-20110202277

PATIENT
  Sex: Female
  Weight: 90.72 kg

DRUGS (13)
  1. FENTANYL-100 [Suspect]
     Indication: NECK PAIN
     Route: 062
  2. PHENYTOIN [Concomitant]
     Indication: CONVULSION
     Dosage: 100 MG TABLETS/3 TABLETS EVERY EVENING
     Route: 048
  3. LANTUS [Concomitant]
     Indication: DIABETES MELLITUS
     Route: 058
  4. CYCLOBENZAPRINE [Concomitant]
     Indication: MUSCLE RELAXANT THERAPY
     Route: 048
  5. VERAPAMIL [Concomitant]
     Indication: HYPERTENSION
     Route: 048
  6. GLYBURIDE [Concomitant]
     Indication: DIABETES MELLITUS
     Route: 048
  7. CAPTOPRIL [Concomitant]
     Indication: HYPERTENSION
     Route: 048
  8. MELOXICAM [Concomitant]
     Indication: ARTHRITIS
     Route: 048
  9. CARVEDILOL [Concomitant]
     Indication: HYPERTENSION
     Route: 048
  10. ALBUTEROL [Concomitant]
     Indication: CHRONIC OBSTRUCTIVE PULMONARY DISEASE
     Route: 055
  11. PHENYTOIN [Concomitant]
     Dosage: 100 MG/2 TABLETS EVERY EVENING
     Route: 048
  12. NEXIUM [Concomitant]
     Indication: ABDOMINAL DISCOMFORT
     Route: 048
  13. PROMETHAZINE [Concomitant]
     Indication: GASTRIC DISORDER
     Dosage: 25 MG EVERY 6 HOURS AS NEEDED
     Route: 048

REACTIONS (5)
  - PAIN [None]
  - EXPIRED DRUG ADMINISTERED [None]
  - DRUG DISPENSING ERROR [None]
  - COUGH [None]
  - DRUG INEFFECTIVE [None]
